FAERS Safety Report 16829037 (Version 1)
Quarter: 2019Q3

REPORT INFORMATION
  Report Type: Spontaneous
  Country: US (occurrence: US)
  Receive Date: 20190730
  Receipt Date: 20190730
  Transmission Date: 20191005
  Serious: No
  Sender: FDA-Public Use
  Company Number: None

PATIENT
  Age: 18 Year
  Sex: Male
  Weight: 69.85 kg

DRUGS (3)
  1. CLONIDINE. [Suspect]
     Active Substance: CLONIDINE
     Indication: AFFECTIVE DISORDER
     Route: 048
  2. CLONIDINE. [Suspect]
     Active Substance: CLONIDINE
     Indication: INTELLECTUAL DISABILITY
  3. CLONIDINE. [Suspect]
     Active Substance: CLONIDINE
     Indication: IMPULSE-CONTROL DISORDER

REACTIONS (3)
  - Therapeutic product effect incomplete [None]
  - Therapeutic response changed [None]
  - Product substitution issue [None]
